FAERS Safety Report 24342386 (Version 1)
Quarter: 2024Q3

REPORT INFORMATION
  Report Type: Spontaneous
  Country: US (occurrence: US)
  Receive Date: 20240920
  Receipt Date: 20240920
  Transmission Date: 20241016
  Serious: No
  Sender: TARO
  Company Number: US-TARO PHARMACEUTICALS USA INC.-2024TAR00091

PATIENT

DRUGS (1)
  1. HYDROCORTISONE VALERATE [Suspect]
     Active Substance: HYDROCORTISONE VALERATE
     Indication: Burning sensation
     Dosage: UNK, TWICE A DAY ON LIPS
     Route: 061

REACTIONS (2)
  - Oral discomfort [Recovering/Resolving]
  - Off label use [Unknown]
